FAERS Safety Report 7201745-0 (Version None)
Quarter: 2010Q4

REPORT INFORMATION
  Report Type: 
  Country: None (occurrence: None)
  Receive Date: 20101229
  Receipt Date: 20101221
  Transmission Date: 20110411
  Serious: Yes (Death, Other)
  Sender: FDA-Public Use
  Company Number: CN-ROCHE-749823

PATIENT
  Age: 40 Year
  Sex: Male

DRUGS (4)
  1. MYCOPHENOLATE MOFETIL [Suspect]
     Route: 065
  2. TACROLIMUS [Suspect]
     Route: 065
  3. PROTHROMBIN COMPLEX [Concomitant]
  4. FIBRINOGEN [Concomitant]

REACTIONS (4)
  - CIRCULATORY COLLAPSE [None]
  - HAEMORRHAGE INTRACRANIAL [None]
  - LUNG INFECTION [None]
  - RESPIRATORY FAILURE [None]
